FAERS Safety Report 7100060-3 (Version None)
Quarter: 2010Q4

REPORT INFORMATION
  Report Type: 
  Country: None (occurrence: None)
  Receive Date: 20101112
  Receipt Date: 20101104
  Transmission Date: 20110411
  Serious: No
  Sender: FDA-Public Use
  Company Number: CH-PFIZER INC-CH-WYE-G06602410

PATIENT
  Age: 26 Year
  Sex: Female

DRUGS (4)
  1. EFFEXOR XR [Suspect]
     Indication: DEPRESSION
     Dosage: 150 MG, 1X/DAY
     Dates: start: 20090901, end: 20100301
  2. EFFEXOR XR [Suspect]
     Dosage: UNK
     Dates: start: 20100301, end: 20100320
  3. LEXOTANIL [Suspect]
     Indication: ANXIETY DISORDER
     Dosage: 1.5 MG, AS NEEDED
     Dates: start: 20090901
  4. SEROPRAM [Suspect]
     Indication: DEPRESSION
     Dosage: 20 MG, 1X/DAY
     Route: 065
     Dates: start: 20100325

REACTIONS (5)
  - ANXIETY [None]
  - CONDITION AGGRAVATED [None]
  - DEPRESSION [None]
  - DRUG INEFFECTIVE [None]
  - INTENTIONAL DRUG MISUSE [None]
